FAERS Safety Report 6121284-8 (Version None)
Quarter: 2009Q1

REPORT INFORMATION
  Report Type: 
  Country: None (occurrence: None)
  Receive Date: 20090312
  Receipt Date: 20090302
  Transmission Date: 20090719
  Serious: Yes (Hospitalization)
  Sender: FDA-Public Use
  Company Number: DSA_33302_2009

PATIENT
  Sex: Male

DRUGS (6)
  1. LORAZEPAM [Suspect]
     Dosage: (NOT THE PRESCRIBED AMOUNT ORAL)
     Route: 048
     Dates: start: 20090227, end: 20090227
  2. ALCOHOL (ALCOHOL - ETHANOL) [Suspect]
     Dosage: (ORAL)
     Route: 048
     Dates: start: 20090227, end: 20090227
  3. DISTRANEURIN /00027501/ (DISTRANEURIN - CLOMETHIAZOLE) (NOT SPECIFIED) [Suspect]
     Dosage: (4800 MG 1X, NOT THE PRESCRIBED AMOUNT ORAL)
     Route: 048
     Dates: start: 20090227, end: 20090227
  4. DIPHENHYDRAMINE HCL [Suspect]
     Dosage: (NOT THE PRESCRIBED AMOUNT ORAL)
     Route: 048
     Dates: start: 20090227, end: 20090227
  5. NORMOC (NORMOC - BROMAZEPAM) (NOT SPECIFIED) [Suspect]
     Dosage: (NOT THE PRESCRIBED AMOUNT ORAL)
     Route: 048
     Dates: start: 20090227, end: 20090227
  6. ROHYPNOL (ROHYPNOL - FLUNITRAZEPAM) (NOT SPECIFIED) [Suspect]
     Dosage: (NOT THE PRESCRIBED AMOUNT ORAL)
     Route: 048
     Dates: start: 20090227, end: 20090227

REACTIONS (6)
  - ALCOHOL USE [None]
  - ASPIRATION [None]
  - LOSS OF CONSCIOUSNESS [None]
  - MULTIPLE DRUG OVERDOSE INTENTIONAL [None]
  - SUICIDE ATTEMPT [None]
  - VOMITING [None]
